FAERS Safety Report 23220582 (Version 2)
Quarter: 2023Q4

REPORT INFORMATION
  Report Type: Spontaneous
  Country: CN (occurrence: CN)
  Receive Date: 20231123
  Receipt Date: 20231206
  Transmission Date: 20240109
  Serious: Yes (Other)
  Sender: FDA-Public Use
  Company Number: CN-Blueprint Medicines Corporation-LT-CN-2023-001858

PATIENT
  Age: 53 Year
  Sex: Female

DRUGS (9)
  1. AYVAKIT [Suspect]
     Active Substance: AVAPRITINIB
     Indication: Acute myeloid leukaemia refractory
     Route: 065
     Dates: start: 20221115
  2. VENETOCLAX [Concomitant]
     Active Substance: VENETOCLAX
     Indication: Acute myeloid leukaemia refractory
     Route: 065
     Dates: start: 20211201
  3. VENETOCLAX [Concomitant]
     Active Substance: VENETOCLAX
     Route: 065
     Dates: start: 20220103
  4. VENETOCLAX [Concomitant]
     Active Substance: VENETOCLAX
     Dosage: 100 MG ON DAY 1, 200 MG ON DAY 2, AND 400 MG FROM DAY 3 TO DAY 28
     Route: 065
     Dates: start: 20221023
  5. VENETOCLAX [Concomitant]
     Active Substance: VENETOCLAX
     Dosage: 100 MG ON DAY 1, 200 MG ON DAY 2, AND 400 MG FROM DAY 3 TO DAY 28
     Route: 065
     Dates: start: 20221115
  6. AZACITIDINE [Concomitant]
     Active Substance: AZACITIDINE
     Indication: Acute myeloid leukaemia refractory
     Route: 065
     Dates: start: 20211201
  7. AZACITIDINE [Concomitant]
     Active Substance: AZACITIDINE
     Route: 065
     Dates: start: 20220103
  8. TUCIDINOSTAT [Concomitant]
     Active Substance: TUCIDINOSTAT
     Indication: Acute myeloid leukaemia refractory
     Dosage: 5 MG ON DAY 1 TO DAY 7
     Route: 065
     Dates: start: 20221023
  9. MIDOSTAURIN [Concomitant]
     Active Substance: MIDOSTAURIN
     Indication: Acute myeloid leukaemia refractory
     Dosage: 50 MG B.I.D. FROM DAY 1 TO DAY 7
     Route: 065
     Dates: start: 20221023

REACTIONS (9)
  - Haematochezia [Unknown]
  - Myelosuppression [Unknown]
  - Klebsiella bacteraemia [Unknown]
  - Pneumonia [Unknown]
  - Stenotrophomonas infection [Unknown]
  - Escherichia infection [Unknown]
  - Pyrexia [Unknown]
  - SARS-CoV-2 test positive [Unknown]
  - Off label use [Unknown]

NARRATIVE: CASE EVENT DATE: 20221122
